FAERS Safety Report 24255185 (Version 1)
Quarter: 2024Q3

REPORT INFORMATION
  Report Type: Spontaneous
  Country: US (occurrence: US)
  Receive Date: 20240827
  Receipt Date: 20240827
  Transmission Date: 20241016
  Serious: Yes (Other)
  Sender: JOHNSON AND JOHNSON
  Company Number: US-JNJFOC-20240861502

PATIENT

DRUGS (2)
  1. TECVAYLI [Suspect]
     Active Substance: TECLISTAMAB-CQYV
     Indication: Plasma cell myeloma
     Route: 058
  2. BLACK COHOSH\HERBALS\HYPERICUM PERFORATUM [Suspect]
     Active Substance: BLACK COHOSH\HERBALS\HYPERICUM PERFORATUM
     Indication: Product used for unknown indication

REACTIONS (1)
  - Neurotoxicity [Recovered/Resolved]

NARRATIVE: CASE EVENT DATE: 20240822
